FAERS Safety Report 9750957 (Version 1)
Quarter: 2013Q4

REPORT INFORMATION
  Report Type: Spontaneous
  Country: US (occurrence: US)
  Receive Date: 20131212
  Receipt Date: 20131212
  Transmission Date: 20140711
  Serious: No
  Sender: FDA-Public Use
  Company Number: US-TEVA-400022USA

PATIENT
  Age: 47 Year
  Sex: Female
  Weight: 87.17 kg

DRUGS (1)
  1. PARAGARD 380A [Suspect]
     Indication: CONTRACEPTION
     Dates: start: 201212, end: 20130419

REACTIONS (1)
  - Menorrhagia [Unknown]
